FAERS Safety Report 5192897-5 (Version None)
Quarter: 2006Q4

REPORT INFORMATION
  Report Type: 
  Country: None (occurrence: None)
  Receive Date: 20061228
  Receipt Date: 20060208
  Transmission Date: 20070319
  Serious: No
  Sender: FDA-Public Use
  Company Number: US-GLAXOSMITHKLINE-A0592889A

PATIENT
  Age: 46 Year
  Sex: Female

DRUGS (8)
  1. FLONASE [Suspect]
     Indication: INFECTION PROPHYLAXIS
     Dosage: 4SPR PER DAY
     Route: 045
     Dates: start: 19900101
  2. FLOVENT [Suspect]
     Indication: ASTHMA
     Route: 055
     Dates: start: 19900101
  3. PSEUDOEPHEDRINE HCL [Concomitant]
  4. ANTIBIOTICS [Concomitant]
  5. CLARITIN [Concomitant]
  6. CALCIUM [Concomitant]
  7. PREDNISONE TAB [Concomitant]
  8. SEREVENT [Concomitant]

REACTIONS (1)
  - OSTEOPOROSIS [None]
